FAERS Safety Report 7539296 (Version 3)
Quarter: 2013Q2

REPORT INFORMATION
  Report Type: Report from Study
  Country: US (occurrence: US)
  Receive Date: 20100204
  Receipt Date: 20130614
  Transmission Date: 20140414
  Serious: Yes (Hospitalization)
  Sender: FDA-Public Use
  Company Number: US-BAXTER-2009BH019910

PATIENT
  Age: 58 Year
  Sex: Female
  Weight: 89 kg

DRUGS (4)
  1. OTHER ANTIDEPRESSANTS [Concomitant]
     Indication: DEPRESSION
     Route: 048
     Dates: start: 20091211
  2. XANAX [Concomitant]
     Indication: SLEEP DISORDER THERAPY
     Route: 048
     Dates: start: 20091211
  3. METHYLPREDNISOLONE [Concomitant]
     Indication: INFECTION PROPHYLAXIS
     Route: 048
     Dates: start: 20091222
  4. ARTISS_VAPOR HEAT-TREATED, SOLVENT/DETERGENT-TREATED_4 IU/ML THROMBIN_ [Suspect]
     Indication: FACE LIFT
     Route: 065
     Dates: start: 20091215, end: 20091215

REACTIONS (2)
  - Wound abscess [Recovered/Resolved]
  - Staphylococcal infection [Recovered/Resolved]
